FAERS Safety Report 21515895 (Version 6)
Quarter: 2023Q2

REPORT INFORMATION
  Report Type: Report from Study
  Country: GB (occurrence: GB)
  Receive Date: 20221027
  Receipt Date: 20230428
  Transmission Date: 20230722
  Serious: Yes (Death, Life-Threatening, Hospitalization)
  Sender: FDA-Public Use
  Company Number: GB-JAZZ-2022-GB-032612

PATIENT
  Sex: Male

DRUGS (2)
  1. CYTARABINE\DAUNORUBICIN [Suspect]
     Active Substance: CYTARABINE\DAUNORUBICIN
     Indication: Acute myeloid leukaemia
     Dosage: UNK
     Route: 042
     Dates: start: 20220927, end: 20221003
  2. CYTARABINE\DAUNORUBICIN [Suspect]
     Active Substance: CYTARABINE\DAUNORUBICIN
     Indication: Myelodysplastic syndrome
     Dosage: 100 UNITS/M2
     Route: 042
     Dates: start: 20220927, end: 20221118

REACTIONS (5)
  - Cardiac arrest [Fatal]
  - Petit mal epilepsy [Not Recovered/Not Resolved]
  - Atrioventricular block second degree [Recovered/Resolved]
  - Infusion related reaction [Recovered/Resolved]
  - Device related infection [Recovered/Resolved]

NARRATIVE: CASE EVENT DATE: 20221012
